FAERS Safety Report 6413669-7 (Version None)
Quarter: 2009Q4

REPORT INFORMATION
  Report Type: 
  Country: None (occurrence: None)
  Receive Date: 20091023
  Receipt Date: 20091023
  Transmission Date: 20100525
  Serious: Yes (Life-Threatening)
  Sender: FDA-Public Use
  Company Number: None

PATIENT
  Sex: Female

DRUGS (5)
  1. AMBIEN CR [Suspect]
     Indication: BIPOLAR II DISORDER
     Dosage: 1 TABLET NIGHTLY PO
     Route: 048
  2. SEROQUEL [Concomitant]
  3. CYMBALTA [Concomitant]
  4. TRILEPTAL [Concomitant]
  5. PREMARIN [Concomitant]

REACTIONS (8)
  - AGGRESSION [None]
  - AMNESIA [None]
  - FATIGUE [None]
  - FEELING ABNORMAL [None]
  - HEADACHE [None]
  - PARAESTHESIA [None]
  - SLEEP TALKING [None]
  - SOMNAMBULISM [None]
